FAERS Safety Report 7659760-9 (Version None)
Quarter: 2011Q3

REPORT INFORMATION
  Report Type: 
  Country: None (occurrence: None)
  Receive Date: 20110805
  Receipt Date: 20101118
  Transmission Date: 20111222
  Serious: No
  Sender: FDA-Public Use
  Company Number: US-ABBOTT-10P-163-0678589-00

PATIENT
  Sex: Male

DRUGS (3)
  1. DEPAKOTE ER [Suspect]
     Dosage: 500MG EVERY EVENING
  2. DEPAKOTE ER [Suspect]
     Indication: BIPOLAR DISORDER
     Dates: start: 20100723
  3. DEPAKOTE ER [Suspect]

REACTIONS (3)
  - IRRITABILITY [None]
  - INSOMNIA [None]
  - PSYCHOMOTOR HYPERACTIVITY [None]
